FAERS Safety Report 4514897-8 (Version None)
Quarter: 2004Q4

REPORT INFORMATION
  Report Type: 
  Country: None (occurrence: None)
  Receive Date: 20041126
  Receipt Date: 20041116
  Transmission Date: 20050328
  Serious: Yes (Hospitalization)
  Sender: FDA-Public Use
  Company Number: 2004076720

PATIENT
  Sex: Male

DRUGS (1)
  1. LIPITOR [Suspect]
     Indication: DYSLIPIDAEMIA
     Dosage: 10 MG (10 MG, 1 IN 1 D); ORAL
     Route: 048
     Dates: start: 20030501

REACTIONS (3)
  - CORONARY ARTERY SURGERY [None]
  - DYSPNOEA [None]
  - MALAISE [None]
